FAERS Safety Report 23977822 (Version 1)
Quarter: 2024Q2

REPORT INFORMATION
  Report Type: Report from Study
  Country: ES (occurrence: ES)
  Receive Date: 20240614
  Receipt Date: 20240614
  Transmission Date: 20240716
  Serious: Yes (Hospitalization, Other)
  Sender: FDA-Public Use
  Company Number: ES-ABBVIE-5187560

PATIENT
  Age: 59 Year
  Sex: Female
  Weight: 78.4 kg

DRUGS (18)
  1. DOXORUBICIN [Suspect]
     Active Substance: DOXORUBICIN
     Indication: Non-Hodgkin^s lymphoma
     Dosage: 50 MG/M2,ONE TIME,TOTAL
     Route: 042
     Dates: start: 20230516
  2. CYCLOPHOSPHAMIDE [Suspect]
     Active Substance: CYCLOPHOSPHAMIDE
     Indication: Non-Hodgkin^s lymphoma
     Dosage: 750 MG/M2,ONE TIME,TOTAL
     Route: 042
     Dates: start: 20230516
  3. ACETAMINOPHEN [Suspect]
     Active Substance: ACETAMINOPHEN
     Indication: Premedication
     Dosage: 1 G, ONE DAY TIME INTERVAL: CYCLICAL
     Route: 048
     Dates: start: 20230516
  4. RITUXIMAB [Suspect]
     Active Substance: RITUXIMAB
     Indication: Non-Hodgkin^s lymphoma
     Dosage: 375 MG/M2,ONE TIME,TOTAL
     Route: 042
     Dates: start: 20230516
  5. IBRUTINIB [Suspect]
     Active Substance: IBRUTINIB
     Indication: Non-Hodgkin^s lymphoma
     Dosage: DRUG NOT ADMINISTERED
     Route: 065
  6. EPCORITAMAB [Suspect]
     Active Substance: EPCORITAMAB
     Indication: B-cell lymphoma
     Dosage: 0.16 MG,ONE TIME,PRIMING DOSE C1, D1
     Route: 058
     Dates: start: 20230516, end: 20230516
  7. EPCORITAMAB [Suspect]
     Active Substance: EPCORITAMAB
     Dosage: 0.8 MG,ONE TIME,INTERMEDIATE DOSE C1, D8
     Route: 058
     Dates: start: 20230523, end: 20230523
  8. EPCORITAMAB [Suspect]
     Active Substance: EPCORITAMAB
     Dosage: 48 MG,ONE TIME,TOTAL: FULL DOSE C1, D15
     Route: 058
     Dates: start: 20230530, end: 20230530
  9. VENETOCLAX [Suspect]
     Active Substance: VENETOCLAX
     Indication: Non-Hodgkin^s lymphoma
     Dosage: DRUG NOT ADMINISTERED
     Route: 065
  10. POLATUZUMAB VEDOTIN [Suspect]
     Active Substance: POLATUZUMAB VEDOTIN
     Indication: Non-Hodgkin^s lymphoma
     Dosage: 1.8 MG/KG, DOSGE NUMBER-1,TOTAL
     Route: 042
     Dates: start: 20230516
  11. PREDNISONE [Suspect]
     Active Substance: PREDNISONE
     Indication: Non-Hodgkin^s lymphoma
     Dosage: 100 MG, ONE TIME IN ONE DAY
     Route: 048
     Dates: start: 20230516
  12. MELOXICAM [Concomitant]
     Active Substance: MELOXICAM
     Indication: Pain prophylaxis
     Dosage: DOSAGE NUMBER-1, AS NECESSARY
     Route: 048
  13. LEVOTHYROXINE SODIUM [Concomitant]
     Active Substance: LEVOTHYROXINE SODIUM
     Indication: Hypothyroidism
     Dosage: 75 UG, ONE TIME IN ONE DAY
     Route: 048
  14. FLUOXETINE HYDROCHLORIDE [Concomitant]
     Active Substance: FLUOXETINE HYDROCHLORIDE
     Indication: Mixed anxiety and depressive disorder
     Dosage: 20 MG, ONE TIME IN ONE DAY
     Route: 048
  15. FUROSEMIDE [Concomitant]
     Active Substance: FUROSEMIDE
     Indication: Hypercalcaemia
     Dosage: 40 MG, ONE TIME IN ONE DAY
     Route: 048
     Dates: start: 20230511
  16. Magnogene [Concomitant]
     Indication: Hypomagnesaemia
     Dosage: ONE TIME,TIME INTERVAL: 0.33333333 DAYS
     Route: 048
     Dates: start: 20230511
  17. DEXCHLORPHENIRAMINE [Concomitant]
     Active Substance: DEXCHLORPHENIRAMINE
     Indication: Premedication
     Dosage: 5 MG,ONE TIME(CYCLICAL)
     Route: 042
     Dates: start: 20230516
  18. PREDNISONE [Concomitant]
     Active Substance: PREDNISONE
     Indication: Prophylaxis
     Dosage: 100 MG, ONE TIME IN ONE DAY
     Route: 048
     Dates: start: 20230523, end: 20230523

REACTIONS (1)
  - Cytokine release syndrome [Recovered/Resolved]

NARRATIVE: CASE EVENT DATE: 20230531
